FAERS Safety Report 9999634 (Version 1)
Quarter: 2014Q1

REPORT INFORMATION
  Report Type: Spontaneous
  Country: FR (occurrence: FR)
  Receive Date: 20140312
  Receipt Date: 20140312
  Transmission Date: 20141002
  Serious: Yes (Hospitalization)
  Sender: FDA-Public Use
  Company Number: FR-BRISTOL-MYERS SQUIBB COMPANY-20352209

PATIENT
  Age: 30 Year
  Sex: Male

DRUGS (1)
  1. ABILIFY TABS 5 MG [Suspect]
     Indication: DELIRIUM
     Dates: start: 2010, end: 20140212

REACTIONS (6)
  - Haemolytic anaemia [Not Recovered/Not Resolved]
  - Thrombocytopenia [Not Recovered/Not Resolved]
  - Haematemesis [Not Recovered/Not Resolved]
  - Haematoma [Not Recovered/Not Resolved]
  - Blood blister [Not Recovered/Not Resolved]
  - Off label use [Unknown]
